FAERS Safety Report 17269459 (Version 1)
Quarter: 2020Q1

REPORT INFORMATION
  Report Type: Spontaneous
  Country: SE (occurrence: SE)
  Receive Date: 20200114
  Receipt Date: 20200114
  Transmission Date: 20200409
  Serious: Yes (Hospitalization)
  Sender: FDA-Public Use
  Company Number: NVSC2019SE066026

PATIENT
  Age: 62 Year
  Sex: Female

DRUGS (21)
  1. DOCETAXEL. [Suspect]
     Active Substance: DOCETAXEL
     Indication: BREAST CANCER
     Dosage: 150 MG, TIW (MOST RECENT DOSE PRIOR TO FLU LIKE SYMPTMS: 27 DEC/2012. MOST RECENT DOSE PRIOR TO INFL
     Route: 042
     Dates: start: 20121113
  2. TRASTUZUMAB. [Suspect]
     Active Substance: TRASTUZUMAB
     Dosage: 8 MG/KG
     Route: 042
     Dates: start: 20131113
  3. METOPROLOL. [Concomitant]
     Active Substance: METOPROLOL
     Indication: PRODUCT USED FOR UNKNOWN INDICATION
     Dosage: 25 MG
     Route: 065
     Dates: start: 20130704
  4. BENZYLPENICILLIN [Concomitant]
     Active Substance: PENICILLIN G
     Indication: PRODUCT USED FOR UNKNOWN INDICATION
     Dosage: 9 G
     Route: 065
     Dates: start: 20130218, end: 20130219
  5. TRASTUZUMAB. [Suspect]
     Active Substance: TRASTUZUMAB
     Indication: BREAST CANCER
     Dosage: 514 MG, TIW (DOSE: 6MG/KG AS PER PROTOCOL. MOST RECENT DOSE PRIOR TO FLU LIKE SYMPTOMS: 27 DEC 2012
     Route: 042
     Dates: start: 20130116
  6. BETAMETASON [Concomitant]
     Indication: PRODUCT USED FOR UNKNOWN INDICATION
     Dosage: UNK
     Route: 065
     Dates: start: 20121111, end: 20130228
  7. DOCETAXEL. [Suspect]
     Active Substance: DOCETAXEL
     Dosage: 15 MG, TIW
     Route: 042
     Dates: start: 20130116
  8. PARACETAMOL [Concomitant]
     Active Substance: ACETAMINOPHEN
     Indication: PRODUCT USED FOR UNKNOWN INDICATION
     Dosage: 1 OT
     Route: 065
     Dates: start: 20121112
  9. PERTUZUMAB. [Suspect]
     Active Substance: PERTUZUMAB
     Indication: BREAST CANCER
     Dosage: 840 MG, ONCE/SINGLE (ON 16/JAN/2013, SHE RECEIVED LATEST DOSE OF PERTUZUMAB)
     Route: 042
     Dates: start: 20121113
  10. PERTUZUMAB. [Suspect]
     Active Substance: PERTUZUMAB
     Dosage: 420 MG, TIW
     Route: 042
     Dates: start: 20130116
  11. TAVEGYL [Concomitant]
     Active Substance: CLEMASTINE FUMARATE
     Indication: PRODUCT USED FOR UNKNOWN INDICATION
     Dosage: 2 G
     Route: 065
     Dates: start: 20121227, end: 20121227
  12. OMEPRAZOLE. [Concomitant]
     Active Substance: OMEPRAZOLE
     Indication: PRODUCT USED FOR UNKNOWN INDICATION
     Dosage: 1 OT
     Route: 065
     Dates: start: 20130109, end: 20130802
  13. TAVANIC [Concomitant]
     Active Substance: LEVOFLOXACIN
     Indication: PRODUCT USED FOR UNKNOWN INDICATION
     Dosage: 500 MG
     Route: 065
     Dates: start: 20121121, end: 20121128
  14. TAVEGYL [Concomitant]
     Active Substance: CLEMASTINE FUMARATE
     Dosage: UNK
     Route: 065
     Dates: start: 20131202, end: 20131219
  15. FELODIPIN [Concomitant]
     Active Substance: FELODIPINE
     Indication: PRODUCT USED FOR UNKNOWN INDICATION
     Dosage: 10 MG
     Route: 065
     Dates: start: 200912
  16. ANTACIDS [Concomitant]
     Active Substance: UNSPECIFIED INGREDIENT
     Indication: PRODUCT USED FOR UNKNOWN INDICATION
     Dosage: 1 OT
     Route: 065
     Dates: start: 20130108, end: 20130802
  17. STESOLID [Concomitant]
     Active Substance: DIAZEPAM
     Indication: PRODUCT USED FOR UNKNOWN INDICATION
     Dosage: UNK
     Route: 065
     Dates: start: 20131219
  18. FILGRASTIM [Concomitant]
     Active Substance: FILGRASTIM
     Indication: PRODUCT USED FOR UNKNOWN INDICATION
     Dosage: UNK (48E)
     Route: 065
     Dates: start: 20130209, end: 20130309
  19. ZOLPIDEM [Concomitant]
     Active Substance: ZOLPIDEM TARTRATE
     Indication: PRODUCT USED FOR UNKNOWN INDICATION
     Dosage: 1 OT
     Route: 065
     Dates: start: 20130110
  20. PERTUZUMAB. [Suspect]
     Active Substance: PERTUZUMAB
     Dosage: 420 UNK (MOST RECENT DOSE PRIOR TO FLU LIKE SYMPTMS: 27/DEC/2012. MOST RECENT DOSE PRIOR TO INFLUENZ
     Route: 042
  21. PRIMPERAN [Concomitant]
     Active Substance: METOCLOPRAMIDE HYDROCHLORIDE
     Indication: PRODUCT USED FOR UNKNOWN INDICATION
     Dosage: 1 OT (1 AS NECESSARY)
     Route: 065
     Dates: start: 20130108, end: 20130802

REACTIONS (4)
  - Influenza like illness [Recovered/Resolved]
  - Febrile neutropenia [Recovered/Resolved]
  - Diarrhoea [Recovered/Resolved]
  - Influenza [Recovered/Resolved]

NARRATIVE: CASE EVENT DATE: 20130107
